FAERS Safety Report 17420480 (Version 1)
Quarter: 2020Q1

REPORT INFORMATION
  Report Type: Spontaneous
  Country: TR (occurrence: TR)
  Receive Date: 20200214
  Receipt Date: 20200214
  Transmission Date: 20200409
  Serious: No
  Sender: FDA-Public Use
  Company Number: TR-TOLMAR, INC.-19TR019660

PATIENT
  Age: 3 Month
  Sex: Male

DRUGS (1)
  1. ELIGARD [Suspect]
     Active Substance: LEUPROLIDE ACETATE
     Indication: PROSTATE CANCER
     Dosage: 45 MG; EVERY 6 MONTHS
     Route: 058
     Dates: start: 20190828

REACTIONS (3)
  - Blood testosterone abnormal [Unknown]
  - Prostatic specific antigen increased [Unknown]
  - Drug ineffective [Unknown]

NARRATIVE: CASE EVENT DATE: 20191211
